FAERS Safety Report 20962739 (Version 1)
Quarter: 2022Q2

REPORT INFORMATION
  Report Type: Report from Study
  Country: US (occurrence: US)
  Receive Date: 20220615
  Receipt Date: 20220615
  Transmission Date: 20220720
  Serious: No
  Sender: FDA-Public Use
  Company Number: US-BIOVITRUM-2022US07766

PATIENT
  Sex: Female

DRUGS (1)
  1. KINERET [Suspect]
     Active Substance: ANAKINRA
     Indication: Rheumatoid arthritis
     Route: 058
     Dates: start: 20220524

REACTIONS (5)
  - Contusion [Unknown]
  - Feeling hot [Unknown]
  - Pruritus [Unknown]
  - Injection site swelling [Unknown]
  - Drug ineffective [Unknown]
